FAERS Safety Report 8494614-X (Version None)
Quarter: 2012Q2

REPORT INFORMATION
  Report Type: 
  Country: None (occurrence: None)
  Receive Date: 20120405
  Receipt Date: 20110412
  Transmission Date: 20120825
  Serious: Yes (Hospitalization)
  Sender: FDA-Public Use
  Company Number: PHHY2011US33489

PATIENT
  Sex: Female

DRUGS (9)
  1. RECLAST [Suspect]
     Indication: OSTEOPOROSIS
     Dosage: 5 MG, INTRAVENOUS
     Route: 042
     Dates: start: 20110404
  2. LORTAB [Concomitant]
  3. ALBUTEROL [Concomitant]
  4. PROMETHAZINE [Concomitant]
  5. AMLODIPINE [Concomitant]
  6. AMBIEN [Concomitant]
  7. ZANTAC [Concomitant]
  8. OXYBUTYNIN [Concomitant]
  9. XANAX [Concomitant]

REACTIONS (4)
  - ABDOMINAL PAIN UPPER [None]
  - BONE PAIN [None]
  - ABDOMINAL DISTENSION [None]
  - ARTHRALGIA [None]
